FAERS Safety Report 8276419-8 (Version None)
Quarter: 2012Q2

REPORT INFORMATION
  Report Type: 
  Country: None (occurrence: None)
  Receive Date: 20120412
  Receipt Date: 20120403
  Transmission Date: 20120825
  Serious: Yes (Other)
  Sender: FDA-Public Use
  Company Number: US-BRISTOL-MYERS SQUIBB COMPANY-16500142

PATIENT
  Age: 66 Year
  Sex: Male
  Weight: 79 kg

DRUGS (7)
  1. COUMADIN [Suspect]
     Indication: THROMBOSIS
     Route: 048
  2. COLAZAL [Concomitant]
     Indication: COLITIS
     Route: 048
     Dates: start: 20101001
  3. LOMOTIL [Concomitant]
     Indication: COLITIS
     Route: 048
  4. ATIVAN [Concomitant]
     Indication: ANXIETY
     Route: 048
  5. REMICADE [Suspect]
     Indication: COLITIS ULCERATIVE
     Dosage: LYOPHILIZED POWDER
     Route: 042
     Dates: start: 20120101
  6. PREDNISONE TAB [Concomitant]
     Dosage: TABS
     Route: 048
     Dates: start: 20110101
  7. NEXIUM [Concomitant]
     Indication: GASTROOESOPHAGEAL REFLUX DISEASE
     Dates: start: 19970101

REACTIONS (5)
  - HAEMORRHAGE [None]
  - OEDEMA PERIPHERAL [None]
  - PAIN IN EXTREMITY [None]
  - COLITIS ULCERATIVE [None]
  - ANXIETY [None]
